FAERS Safety Report 18140630 (Version 1)
Quarter: 2020Q3

REPORT INFORMATION
  Report Type: Spontaneous
  Country: CA (occurrence: CA)
  Receive Date: 20200812
  Receipt Date: 20200812
  Transmission Date: 20201103
  Serious: Yes (Other)
  Sender: FDA-Public Use
  Company Number: CA-009507513-2007CAN000341

PATIENT
  Age: 62 Year
  Sex: Male
  Weight: 78.3 kg

DRUGS (6)
  1. ALITRETINOIN [Concomitant]
     Active Substance: ALITRETINOIN
     Indication: CUTANEOUS T-CELL LYMPHOMA
     Dosage: 30 MILLIGRAM, QD
     Route: 048
     Dates: start: 201411
  2. PUVASORALEN [Concomitant]
     Active Substance: METHOXSALEN
     Dosage: 200 TREATMENTS
     Dates: start: 201307, end: 201601
  3. MECHLORETHAMINE HYDROCHLORIDE [Suspect]
     Active Substance: MECHLORETHAMINE HYDROCHLORIDE
     Indication: CUTANEOUS T-CELL LYMPHOMA
     Dosage: UNK
     Route: 061
     Dates: start: 2012, end: 2013
  4. PUVASORALEN [Concomitant]
     Active Substance: METHOXSALEN
     Dosage: 40 MILLIGRAM TWICE WEEKLY
     Route: 048
     Dates: start: 2012, end: 2013
  5. INTRON A [Suspect]
     Active Substance: INTERFERON ALFA-2B
     Indication: CUTANEOUS T-CELL LYMPHOMA
     Dosage: 3 MILLION UNITS, 3 TIMES WEEKLY
     Route: 058
     Dates: start: 201702, end: 201706
  6. METHOTREXATE. [Suspect]
     Active Substance: METHOTREXATE
     Indication: CUTANEOUS T-CELL LYMPHOMA
     Dosage: 30 MILLIGRAM, WEEKLY
     Route: 048
     Dates: start: 201702, end: 201706

REACTIONS (2)
  - Pancreatic carcinoma [Recovering/Resolving]
  - Product use in unapproved indication [Unknown]

NARRATIVE: CASE EVENT DATE: 201707
